FAERS Safety Report 24428181 (Version 1)
Quarter: 2024Q4

REPORT INFORMATION
  Report Type: Spontaneous
  Country: US (occurrence: None)
  Receive Date: 20241011
  Receipt Date: 20241011
  Transmission Date: 20250115
  Serious: Yes (Hospitalization)
  Sender: Public
  Company Number: None

PATIENT
  Sex: Female

DRUGS (1)
  1. AUGTYRO [Suspect]
     Active Substance: REPOTRECTINIB
     Dosage: FREQUENCY : TWICE A DAY;?
     Route: 048
     Dates: start: 202407

REACTIONS (8)
  - Hepatic enzyme increased [None]
  - Pleural effusion [None]
  - Cough [None]
  - Anaemia [None]
  - Abdominal pain [None]
  - Adrenal haemorrhage [None]
  - Central nervous system lesion [None]
  - Seizure [None]
